FAERS Safety Report 7591698-8 (Version None)
Quarter: 2011Q3

REPORT INFORMATION
  Report Type: 
  Country: None (occurrence: None)
  Receive Date: 20110706
  Receipt Date: 20110613
  Transmission Date: 20111222
  Serious: Yes (Hospitalization, Other)
  Sender: FDA-Public Use
  Company Number: US-BAYER-201033408NA

PATIENT
  Age: 17 Year
  Sex: Female
  Weight: 63.6 kg

DRUGS (14)
  1. CARAFATE [Concomitant]
     Dosage: 1 G, TID
     Route: 048
  2. PROTON PUMP INHIBITORS [Concomitant]
     Dosage: DAILY
  3. ZOFRAN [Concomitant]
     Indication: VOMITING
  4. LOESTRIN 1.5/30 [Concomitant]
     Indication: MENSTRUATION IRREGULAR
  5. INDERAL [Concomitant]
     Dosage: 1 TABLET AS NEEDED TWO TIMES A DAY
     Route: 048
  6. YAZ [Suspect]
     Indication: PREMENSTRUAL SYNDROME
  7. TAGAMET [Concomitant]
  8. YAZ [Suspect]
     Indication: ACNE
     Dosage: UNK
     Route: 048
     Dates: start: 20070101, end: 20100101
  9. NEXIUM [Concomitant]
     Dosage: 40 MG, QD
     Route: 048
     Dates: start: 20081201
  10. PROBIOTICS [Concomitant]
     Indication: PROBIOTIC THERAPY
  11. LORTAB [Concomitant]
     Dosage: 5 MG, UNK
     Route: 048
     Dates: start: 20081212
  12. ZANTAC [Concomitant]
     Dosage: 150 MG, BID
     Route: 048
     Dates: start: 20081101
  13. ZOFRAN [Concomitant]
     Indication: NAUSEA
     Dosage: 8 MG, TID
     Route: 048
     Dates: start: 20081201
  14. PREVACID [Concomitant]
     Dosage: 30 MG, QD
     Route: 048
     Dates: start: 20081101

REACTIONS (10)
  - PAIN [None]
  - ABDOMINAL PAIN UPPER [None]
  - GASTRITIS [None]
  - CHOLELITHIASIS [None]
  - CHOLECYSTITIS CHRONIC [None]
  - BILIARY DYSKINESIA [None]
  - ABDOMINAL PAIN LOWER [None]
  - DIARRHOEA [None]
  - CONSTIPATION [None]
  - VOMITING [None]
